FAERS Safety Report 16561199 (Version 1)
Quarter: 2019Q3

REPORT INFORMATION
  Report Type: Spontaneous
  Country: FR (occurrence: FR)
  Receive Date: 20190711
  Receipt Date: 20190711
  Transmission Date: 20191004
  Serious: Yes (Hospitalization)
  Sender: FDA-Public Use
  Company Number: FR-MYLANLABS-2019M1063469

PATIENT
  Sex: Male
  Weight: 73 kg

DRUGS (1)
  1. CIPROFLOXACINE MYLAN 500 MG, COMPRIM? PELLICUL? S?CABLE [Suspect]
     Active Substance: CIPROFLOXACIN
     Indication: URINARY TRACT INFECTION
     Dosage: 500 MILLIGRAM, Q2D(CYCLE DE 21 JOURS RENOUVEL? TOUS LES MOIS)
     Route: 048
     Dates: start: 20060303, end: 20180128

REACTIONS (2)
  - Hallucination [Recovered/Resolved]
  - Autoimmune disorder [Not Recovered/Not Resolved]

NARRATIVE: CASE EVENT DATE: 2016
